FAERS Safety Report 6576619-9 (Version None)
Quarter: 2010Q1

REPORT INFORMATION
  Report Type: 
  Country: None (occurrence: None)
  Receive Date: 20100210
  Receipt Date: 20100205
  Transmission Date: 20100710
  Serious: Yes (Other)
  Sender: FDA-Public Use
  Company Number: CH-BRISTOL-MYERS SQUIBB COMPANY-14956569

PATIENT
  Age: 48 Year
  Sex: Female

DRUGS (2)
  1. ORENCIA [Suspect]
     Indication: RHEUMATOID ARTHRITIS
     Dosage: RECEIVED 7 CYCLES
     Route: 042
     Dates: start: 20090724
  2. METHOTREXATE [Suspect]
     Route: 058
     Dates: start: 20090301

REACTIONS (1)
  - LUNG INFILTRATION [None]
